FAERS Safety Report 5214810-4 (Version None)
Quarter: 2007Q1

REPORT INFORMATION
  Report Type: 
  Country: None (occurrence: None)
  Receive Date: 20070122
  Receipt Date: 20070116
  Transmission Date: 20070707
  Serious: Yes (Disabling, Other)
  Sender: FDA-Public Use
  Company Number: GB-BOEHRINGER INGELHEIM PHARMACEUTICALS, INC.-2007-UK-00189UK

PATIENT
  Age: 50 Year
  Sex: Female
  Weight: 40 kg

DRUGS (5)
  1. MOBIC [Suspect]
     Route: 048
     Dates: end: 20070101
  2. CYCLIZINE [Concomitant]
     Route: 048
  3. MEBEVERINE [Concomitant]
     Route: 048
  4. MORPHINE SUL INJ [Concomitant]
     Route: 048
  5. PREMARIN [Concomitant]
     Route: 048

REACTIONS (8)
  - COGNITIVE DISORDER [None]
  - CONFUSIONAL STATE [None]
  - DIZZINESS [None]
  - NAUSEA [None]
  - RASH [None]
  - SOMNOLENCE [None]
  - VISUAL DISTURBANCE [None]
  - VOMITING [None]
